FAERS Safety Report 6192028-9 (Version None)
Quarter: 2009Q2

REPORT INFORMATION
  Report Type: 
  Country: None (occurrence: None)
  Receive Date: 20090515
  Receipt Date: 20090505
  Transmission Date: 20091009
  Serious: Yes (Hospitalization)
  Sender: FDA-Public Use
  Company Number: US-MERCK-0905USA01113

PATIENT
  Age: 79 Year
  Sex: Female

DRUGS (1)
  1. HYDRODIURIL [Suspect]
     Route: 048

REACTIONS (3)
  - DEHYDRATION [None]
  - HYPONATRAEMIA [None]
  - RENAL FAILURE ACUTE [None]
